FAERS Safety Report 8912677 (Version 1)
Quarter: 2012Q4

REPORT INFORMATION
  Report Type: 
  Country: AU (occurrence: AU)
  Receive Date: 20121116
  Receipt Date: 20121116
  Transmission Date: 20130627
  Serious: Yes (Other)
  Sender: FDA-Public Use
  Company Number: AU-ROCHE-1155811

PATIENT
  Sex: Female

DRUGS (6)
  1. XELODA [Suspect]
     Indication: COLON CANCER METASTATIC
     Route: 065
  2. OXALIPLATIN [Concomitant]
     Route: 065
  3. FOLINIC ACID [Concomitant]
  4. 5-FU [Concomitant]
     Dosage: D1
     Route: 065
  5. 5-FU [Concomitant]
     Dosage: D1-D3
     Route: 065
  6. CETUXIMAB [Concomitant]

REACTIONS (1)
  - Disease progression [Unknown]
